FAERS Safety Report 8065446-1 (Version None)
Quarter: 2012Q1

REPORT INFORMATION
  Report Type: 
  Country: None (occurrence: None)
  Receive Date: 20120117
  Receipt Date: 20120109
  Transmission Date: 20120608
  Serious: Yes (Hospitalization)
  Sender: FDA-Public Use
  Company Number: 7066596

PATIENT
  Age: 40 Year
  Sex: Female

DRUGS (2)
  1. SUPRADYN (MULTIVITAMIN AND MINERAL SUPPLEMENT) (MULTIVITAMIN AND MINER [Suspect]
     Indication: PRODUCT USED FOR UNKNOWN INDICATION
     Dates: start: 20110101
  2. LEVOTHYROXINE SODIUM [Suspect]
     Indication: AUTOIMMUNE THYROIDITIS
     Dosage: ORAL
     Route: 048

REACTIONS (6)
  - BLOOD THYROID STIMULATING HORMONE INCREASED [None]
  - VENOUS INSUFFICIENCY [None]
  - DRUG INTERACTION [None]
  - TREATMENT NONCOMPLIANCE [None]
  - OEDEMA PERIPHERAL [None]
  - CONDITION AGGRAVATED [None]
